FAERS Safety Report 5341046-9 (Version None)
Quarter: 2007Q2

REPORT INFORMATION
  Report Type: 
  Country: None (occurrence: None)
  Receive Date: 20070530
  Receipt Date: 20070514
  Transmission Date: 20071010
  Serious: Yes (Hospitalization)
  Sender: FDA-Public Use
  Company Number: 2007000881

PATIENT
  Age: 60 Year
  Sex: Male

DRUGS (3)
  1. ERLOTINIB (TABLET) (ERLOTINIB HCL) [Suspect]
     Indication: NON-SMALL CELL LUNG CANCER
     Dosage: 100 MG (4 TIMER PER WEEK), ORAL
     Route: 048
  2. BEVACIZUMAB (INJECTION FOR INFUSION) [Suspect]
     Indication: NON-SMALL CELL LUNG CANCER
     Dosage: 15 MG/KG, X2, INTRAVENOUS
     Route: 042
  3. RADIATION THERAPY [Concomitant]
     Indication: NON-SMALL CELL LUNG CANCER
     Dosage: 2 GY (QD)

REACTIONS (2)
  - OESOPHAGITIS [None]
  - PULMONARY HAEMORRHAGE [None]
